FAERS Safety Report 8970592 (Version 1)
Quarter: 2012Q4

REPORT INFORMATION
  Report Type: 
  Country: US (occurrence: US)
  Receive Date: 20121218
  Receipt Date: 20121218
  Transmission Date: 20130627
  Serious: No
  Sender: FDA-Public Use
  Company Number: US-GLAXOSMITHKLINE-A0984408A

PATIENT
  Age: 25 Year
  Sex: Male

DRUGS (3)
  1. NICORETTE [Suspect]
     Route: 002
  2. NICORETTE [Suspect]
     Indication: SMOKING CESSATION THERAPY
     Route: 002
     Dates: start: 20120625, end: 20120629
  3. NICODERM CQ [Suspect]
     Indication: SMOKING CESSATION THERAPY
     Route: 062

REACTIONS (3)
  - Nonspecific reaction [Unknown]
  - Application site rash [Unknown]
  - Stomatitis [Unknown]
